FAERS Safety Report 25458425 (Version 1)
Quarter: 2025Q2

REPORT INFORMATION
  Report Type: Spontaneous
  Country: US (occurrence: US)
  Receive Date: 20250620
  Receipt Date: 20250620
  Transmission Date: 20250716
  Serious: No
  Sender: EMCURE PHARMACEUTICALS LTD
  Company Number: US-AVET LIFESCIENCES LTD-2025-AVET-000192

PATIENT

DRUGS (4)
  1. ADENOSINE [Suspect]
     Active Substance: ADENOSINE
     Indication: Heart rate abnormal
     Route: 065
     Dates: start: 20250609, end: 20250609
  2. ADENOSINE [Suspect]
     Active Substance: ADENOSINE
     Route: 065
     Dates: start: 20250609, end: 20250609
  3. ADENOSINE [Suspect]
     Active Substance: ADENOSINE
     Route: 065
     Dates: start: 20250609, end: 20250609
  4. ADENOSINE [Suspect]
     Active Substance: ADENOSINE
     Route: 065
     Dates: start: 20250609, end: 20250609

REACTIONS (2)
  - Drug ineffective [Unknown]
  - Off label use [Unknown]

NARRATIVE: CASE EVENT DATE: 20250609
